FAERS Safety Report 6689238-0 (Version None)
Quarter: 2010Q2

REPORT INFORMATION
  Report Type: 
  Country: None (occurrence: None)
  Receive Date: 20100409
  Receipt Date: 20100405
  Transmission Date: 20101027
  Serious: Yes (Hospitalization)
  Sender: FDA-Public Use
  Company Number: 2008SP016720

PATIENT
  Age: 35 Year
  Sex: Female
  Weight: 58 kg

DRUGS (7)
  1. TEMOZOLOMIDE [Suspect]
     Indication: BREAST CANCER METASTATIC
     Dates: start: 20080701, end: 20080706
  2. ABT-888 (INVESTIGATIONAL DRUG) [Suspect]
     Indication: BREAST CANCER METASTATIC
     Dosage: 40 MG; BID; PO
     Route: 048
     Dates: start: 20080702, end: 20080707
  3. PLATELETS [Concomitant]
  4. BACTRIM [Concomitant]
  5. ZOLPIDEM TARTRATE [Concomitant]
  6. FLUTICASEON PROPIONATE [Concomitant]
  7. ZOLEDRONIC ACID [Concomitant]

REACTIONS (9)
  - DECREASED APPETITE [None]
  - FACE OEDEMA [None]
  - FEBRILE NEUTROPENIA [None]
  - HAEMOGLOBIN DECREASED [None]
  - NAUSEA [None]
  - PRURITUS [None]
  - RASH MACULAR [None]
  - VIRAL INFECTION [None]
  - WHITE BLOOD CELL COUNT DECREASED [None]
